FAERS Safety Report 5286967-0 (Version None)
Quarter: 2007Q1

REPORT INFORMATION
  Report Type: 
  Country: None (occurrence: None)
  Receive Date: 20070329
  Receipt Date: 20070320
  Transmission Date: 20070707
  Serious: Yes (Death)
  Sender: FDA-Public Use
  Company Number: MEDI-0005509

PATIENT
  Age: 54 Year
  Sex: Male

DRUGS (2)
  1. ETHYOL [Suspect]
     Dosage: INTRAVENOUS (NOT OTHERWISE SPECIFIED)
     Route: 042
  2. CHEMORADIOTHERAPY [Concomitant]

REACTIONS (1)
  - MYOCARDIAL INFARCTION [None]
